FAERS Safety Report 23336803 (Version 1)
Quarter: 2023Q4

REPORT INFORMATION
  Report Type: Spontaneous
  Country: SE (occurrence: SE)
  Receive Date: 20231226
  Receipt Date: 20231226
  Transmission Date: 20240109
  Serious: Yes (Life-Threatening, Hospitalization, Other)
  Sender: FDA-Public Use
  Company Number: SE-CELLTRION INC.-2023SE020852

PATIENT

DRUGS (18)
  1. RITUXIMAB [Suspect]
     Active Substance: RITUXIMAB
     Indication: Follicular lymphoma
     Dosage: ONCE A MONTH
     Route: 065
     Dates: start: 202111
  2. RITUXIMAB [Suspect]
     Active Substance: RITUXIMAB
     Indication: Immunosuppressant drug therapy
  3. LENALIDOMIDE [Suspect]
     Active Substance: LENALIDOMIDE
     Indication: Follicular lymphoma
     Dosage: DAILY FOR 3 WEEKS WITH A 1-WEEK PAUSE
     Route: 065
     Dates: start: 202111
  4. LENALIDOMIDE [Suspect]
     Active Substance: LENALIDOMIDE
     Indication: Immunosuppressant drug therapy
  5. EPCORITAMAB [Suspect]
     Active Substance: EPCORITAMAB
     Indication: Follicular lymphoma
     Dosage: ONCE A MONTH
     Dates: start: 202111
  6. EPCORITAMAB [Suspect]
     Active Substance: EPCORITAMAB
     Indication: Immunosuppressant drug therapy
     Dosage: EVERY 1 MONTH
     Route: 065
  7. EPCORITAMAB [Suspect]
     Active Substance: EPCORITAMAB
     Indication: COVID-19
  8. LEFLUNOMIDE [Suspect]
     Active Substance: LEFLUNOMIDE
     Indication: Follicular lymphoma
     Dosage: DAILY FOR 3 WEEKS WITH A 1-WEEK PAUSE
  9. SARS-COV-2 VACCINE [Concomitant]
     Indication: COVID-19
     Dosage: FOUR DOSES
  10. SARS-COV-2 VACCINE [Concomitant]
     Dosage: FOUR DOSES
  11. SARS-COV-2 VACCINE [Concomitant]
     Dosage: FOUR DOSES
  12. SARS-COV-2 VACCINE [Concomitant]
     Dosage: FOUR DOSES
     Dates: start: 202203
  13. SARS-COV-2 VACCINE [Concomitant]
     Dosage: FOUR DOSES
     Route: 065
  14. DEXAMETHASONE [Concomitant]
     Active Substance: DEXAMETHASONE
     Indication: COVID-19
     Dosage: 6 MG
     Route: 065
  15. CILGAVIMAB\TIXAGEVIMAB [Concomitant]
     Active Substance: CILGAVIMAB\TIXAGEVIMAB
     Indication: COVID-19
     Dosage: 600 MG
     Route: 065
  16. CILGAVIMAB\TIXAGEVIMAB [Concomitant]
     Active Substance: CILGAVIMAB\TIXAGEVIMAB
     Dosage: 300 MG (1 DOSE)
     Route: 065
  17. REMDESIVIR [Concomitant]
     Active Substance: REMDESIVIR
     Indication: COVID-19
     Dosage: UNK
     Route: 065
  18. NIRMATRELVIR\RITONAVIR [Concomitant]
     Active Substance: NIRMATRELVIR\RITONAVIR
     Indication: COVID-19
     Dosage: UNK
     Route: 065

REACTIONS (6)
  - COVID-19 [Recovered/Resolved]
  - Off label use [Unknown]
  - Vaccination failure [Unknown]
  - Vaccine interaction [Unknown]
  - Off label use [Unknown]
  - Off label use [Unknown]

NARRATIVE: CASE EVENT DATE: 20220401
